FAERS Safety Report 15647012 (Version 1)
Quarter: 2018Q4

REPORT INFORMATION
  Report Type: Spontaneous
  Country: US (occurrence: US)
  Receive Date: 20181122
  Receipt Date: 20181122
  Transmission Date: 20190205
  Serious: Yes (Hospitalization, Other)
  Sender: FDA-Public Use
  Company Number: US-ROCHE-2215352

PATIENT
  Sex: Male

DRUGS (1)
  1. TECENTRIQ [Suspect]
     Active Substance: ATEZOLIZUMAB
     Indication: NON-SMALL CELL LUNG CANCER
     Route: 065
     Dates: start: 2018

REACTIONS (5)
  - Squamous cell carcinoma [Unknown]
  - Osteomyelitis acute [Unknown]
  - Granuloma [Unknown]
  - Bone lesion [Unknown]
  - Bone neoplasm [Unknown]
